FAERS Safety Report 24316447 (Version 1)
Quarter: 2024Q3

REPORT INFORMATION
  Report Type: Spontaneous
  Country: US (occurrence: None)
  Receive Date: 20240912
  Receipt Date: 20240912
  Transmission Date: 20241016
  Serious: Yes (Hospitalization)
  Sender: Public
  Company Number: None

PATIENT
  Age: 68 Year
  Sex: Male

DRUGS (4)
  1. SIROLIMUS [Suspect]
     Active Substance: SIROLIMUS
     Indication: Complications of transplanted heart
     Dosage: 1MG DAILY ORAL?
     Route: 048
     Dates: start: 202304
  2. SIROLIMUS [Suspect]
     Active Substance: SIROLIMUS
     Indication: Coronary artery disease
  3. TACROLIMUS [Suspect]
     Active Substance: TACROLIMUS
     Indication: Complications of transplanted heart
     Dosage: 0.5MG DAILY ORAL?
     Route: 048
     Dates: start: 202304
  4. TACROLIMUS [Suspect]
     Active Substance: TACROLIMUS
     Indication: Coronary artery disease

REACTIONS (2)
  - Urinary tract infection [None]
  - Sepsis [None]

NARRATIVE: CASE EVENT DATE: 20240812
